FAERS Safety Report 22245415 (Version 1)
Quarter: 2023Q2

REPORT INFORMATION
  Report Type: Spontaneous
  Country: US (occurrence: None)
  Receive Date: 20230423
  Receipt Date: 20230423
  Transmission Date: 20230722
  Serious: Yes (Disabling)
  Sender: FDA-Public Use
  Company Number: None

PATIENT
  Age: 39 Year
  Sex: Male
  Weight: 81 kg

DRUGS (7)
  1. BUSPIRONE [Suspect]
     Active Substance: BUSPIRONE HYDROCHLORIDE
     Indication: Anxiety
     Dosage: FREQUENCY : 3 TIMES A DAY;?
     Route: 048
     Dates: start: 20230401
  2. DESVENLAFAXINE [Suspect]
     Active Substance: DESVENLAFAXINE
     Indication: Depression
     Dosage: FREQUENCY : EVERY DAY BEFORE NOON;?
     Dates: start: 20230102
  3. NALTREXONE [Concomitant]
     Active Substance: NALTREXONE
  4. busiprone [Concomitant]
  5. pristiq generic [Concomitant]
  6. LOSARTAN [Concomitant]
     Active Substance: LOSARTAN
  7. TRAZODONE [Concomitant]
     Active Substance: TRAZODONE HYDROCHLORIDE

REACTIONS (2)
  - Penis disorder [None]
  - Erectile dysfunction [None]

NARRATIVE: CASE EVENT DATE: 20230410
